FAERS Safety Report 13550349 (Version 2)
Quarter: 2017Q3

REPORT INFORMATION
  Report Type: Spontaneous
  Country: IT (occurrence: IT)
  Receive Date: 20170516
  Receipt Date: 20170808
  Transmission Date: 20171127
  Serious: Yes (Hospitalization, Other)
  Sender: FDA-Public Use
  Company Number: IT-BRISTOL-MYERS SQUIBB COMPANY-BMS-2017-040902

PATIENT
  Age: 75 Year
  Sex: Male
  Weight: 96 kg

DRUGS (1)
  1. NIVOLUMAB BMS [Suspect]
     Active Substance: NIVOLUMAB
     Indication: METASTATIC MALIGNANT MELANOMA
     Dosage: 320 MG, UNK
     Route: 042
     Dates: start: 20170111, end: 20170125

REACTIONS (2)
  - Respiratory failure [Unknown]
  - Interstitial lung disease [Unknown]

NARRATIVE: CASE EVENT DATE: 20170308
